FAERS Safety Report 7954957-2 (Version None)
Quarter: 2011Q4

REPORT INFORMATION
  Report Type: 
  Country: None (occurrence: None)
  Receive Date: 20111125
  Receipt Date: 20111114
  Transmission Date: 20120403
  Serious: Yes (Other)
  Sender: FDA-Public Use
  Company Number: 1000025497

PATIENT
  Age: 31 Year
  Sex: Female

DRUGS (4)
  1. AMBIEN [Suspect]
  2. VIIBRYD [Suspect]
     Dosage: 10 MG (10 MG,1 IN 1 D),ORAL ; 20 MG (20 MG,1 IN 1 D),ORAL
     Route: 048
     Dates: start: 20110101, end: 20110101
  3. VIIBRYD [Suspect]
     Dosage: 10 MG (10 MG,1 IN 1 D),ORAL ; 20 MG (20 MG,1 IN 1 D),ORAL
     Route: 048
     Dates: start: 20110101, end: 20110101
  4. VIIBRYD [Suspect]
     Dosage: 40 MG (40 MG,1 IN 1 D),ORAL
     Route: 048
     Dates: start: 20110101, end: 20110101

REACTIONS (2)
  - SUICIDE ATTEMPT [None]
  - INTENTIONAL OVERDOSE [None]
